FAERS Safety Report 13193535 (Version 3)
Quarter: 2017Q1

REPORT INFORMATION
  Report Type: Report from Study
  Country: MX (occurrence: MX)
  Receive Date: 20170207
  Receipt Date: 20170327
  Transmission Date: 20170428
  Serious: Yes (Hospitalization)
  Sender: FDA-Public Use
  Company Number: MX-BAYER-2017-020948

PATIENT
  Age: 60 Year
  Sex: Female
  Weight: 55.96 kg

DRUGS (7)
  1. LOSARTAN. [Concomitant]
     Active Substance: LOSARTAN
  2. NEXAVAR [Suspect]
     Active Substance: SORAFENIB
     Indication: RENAL CELL CARCINOMA
     Dosage: 800 MG, OM (IN ONE INTAKE DAILY MORNING)
     Dates: start: 20160520, end: 2016
  3. METFORMIN [Concomitant]
     Active Substance: METFORMIN HYDROCHLORIDE
  4. NEXAVAR [Suspect]
     Active Substance: SORAFENIB
     Indication: RENAL CELL CARCINOMA
     Dosage: 400 MG, QD (IN ONE INTAKE DAILY MORNING)
     Route: 048
     Dates: start: 201607, end: 20170109
  5. GLIBENCLAMIDE [Concomitant]
     Active Substance: GLYBURIDE
  6. LEVOTHYROXINE. [Concomitant]
     Active Substance: LEVOTHYROXINE
  7. NEXAVAR [Suspect]
     Active Substance: SORAFENIB
     Indication: RENAL CELL CARCINOMA
     Dosage: 400 MG, QD (IN ONE INTAKE DAILY MORNING)
     Route: 048
     Dates: start: 20170209

REACTIONS (11)
  - Burning sensation [Not Recovered/Not Resolved]
  - Skin fissures [Not Recovered/Not Resolved]
  - Urticaria [Recovered/Resolved]
  - Skin lesion [Not Recovered/Not Resolved]
  - Product availability issue [Recovered/Resolved]
  - Pyrexia [Recovered/Resolved]
  - Palmar-plantar erythrodysaesthesia syndrome [Unknown]
  - Dry skin [Not Recovered/Not Resolved]
  - Inflammation [Recovered/Resolved]
  - Off label use [None]
  - Skin haemorrhage [Recovered/Resolved]

NARRATIVE: CASE EVENT DATE: 201605
